FAERS Safety Report 16145408 (Version 2)
Quarter: 2019Q2

REPORT INFORMATION
  Report Type: Report from Study
  Country: None (occurrence: TR)
  Receive Date: 20190402
  Receipt Date: 20190430
  Transmission Date: 20190711
  Serious: Yes (Hospitalization)
  Sender: FDA-Public Use
  Company Number: TR-ABBVIE-19S-161-2724961-00

PATIENT
  Sex: Female
  Weight: 125 kg

DRUGS (5)
  1. NEURONTIN [Concomitant]
     Active Substance: GABAPENTIN
     Indication: NEURALGIA
     Dosage: 2X600 MG
     Route: 048
  2. DUODOPA [Suspect]
     Active Substance: CARBIDOPA\LEVODOPA
     Dosage: MD(ML): 3,00 CD(ML): 2,80 ED(ML):?1,00
     Route: 050
     Dates: start: 20190327
  3. DUODOPA [Suspect]
     Active Substance: CARBIDOPA\LEVODOPA
     Indication: PARKINSON^S DISEASE
     Dosage: MD(ML): 3,00 CD(ML): 3,00 ED(ML):1,00
     Route: 050
     Dates: start: 20170724, end: 20190327
  4. GYREX [Concomitant]
     Indication: PARKINSON^S DISEASE
     Dosage: 2X50 MG
     Route: 048
  5. VASOCARD [Concomitant]
     Active Substance: AMLODIPINE BESYLATE
     Indication: THROMBOSIS PROPHYLAXIS
     Dosage: 1X5 MG
     Route: 048

REACTIONS (2)
  - Hallucination [Recovered/Resolved]
  - Fatigue [Recovered/Resolved]
